FAERS Safety Report 5510035-3 (Version None)
Quarter: 2007Q4

REPORT INFORMATION
  Report Type: 
  Country: None (occurrence: None)
  Receive Date: 20071108
  Receipt Date: 20061209
  Transmission Date: 20080405
  Serious: No
  Sender: FDA-Public Use
  Company Number: US-ABBOTT-06P-163-0353347-00

PATIENT
  Sex: Female
  Weight: 43.13 kg

DRUGS (3)
  1. BIAXIN [Suspect]
     Indication: SINUSITIS
     Route: 048
     Dates: start: 20061112, end: 20061119
  2. IBUPROFEN [Concomitant]
     Indication: DRUG USE FOR UNKNOWN INDICATION
     Route: 048
  3. EXCEDRIN (MIGRAINE) [Concomitant]
     Indication: DRUG USE FOR UNKNOWN INDICATION
     Route: 048

REACTIONS (4)
  - AGEUSIA [None]
  - OEDEMA PERIPHERAL [None]
  - RASH [None]
  - SWOLLEN TONGUE [None]
